FAERS Safety Report 9223763 (Version 1)
Quarter: 2013Q2

REPORT INFORMATION
  Report Type: Spontaneous
  Country: US (occurrence: US)
  Receive Date: 20130410
  Receipt Date: 20130410
  Transmission Date: 20140414
  Serious: No
  Sender: FDA-Public Use
  Company Number: US-PFIZER INC-2013058132

PATIENT
  Age: 18 Year
  Sex: Male
  Weight: 99.77 kg

DRUGS (1)
  1. XYNTHA [Suspect]
     Indication: FACTOR VIII DEFICIENCY
     Dosage: 15 IU/KG, MONTHLY

REACTIONS (2)
  - Off label use [Unknown]
  - Joint injury [Unknown]
